FAERS Safety Report 5939146-5 (Version None)
Quarter: 2008Q4

REPORT INFORMATION
  Report Type: 
  Country: None (occurrence: None)
  Receive Date: 20081103
  Receipt Date: 20081022
  Transmission Date: 20090506
  Serious: Yes (Hospitalization, Other)
  Sender: FDA-Public Use
  Company Number: US-PFIZER INC-2008089457

PATIENT
  Sex: Male
  Weight: 102.1 kg

DRUGS (18)
  1. NEURONTIN [Suspect]
     Dates: start: 20010611, end: 20030101
  2. ACTIQ [Suspect]
     Indication: ARTHRALGIA
     Dates: start: 20020116, end: 20030314
  3. ACTIQ [Suspect]
     Dosage: DAILY DOSE:600MCG-FREQ:QID; BUCCAL
     Dates: start: 20021122, end: 20030314
  4. ACTIQ [Suspect]
     Dosage: TEXT:USING 3 TO 9 LOZENGES DAILY
     Dates: start: 20030315, end: 20030708
  5. ACTIQ [Suspect]
     Dosage: DAILY DOSE:600MCG-FREQ:PRN; BUCCAL
     Dates: start: 20060209, end: 20060312
  6. ACTIQ [Suspect]
     Dosage: DAILY DOSE:600MCG-FREQ:BID; BUCCAL
     Dates: start: 20060313
  7. DURAGESIC-100 [Suspect]
     Indication: ARTHRALGIA
     Dosage: DAILY DOSE:25MCG-FREQ:FREQUENCY ; Q1HR
     Route: 062
     Dates: start: 20010716, end: 20010813
  8. DURAGESIC-100 [Suspect]
     Dosage: DAILY DOSE:50MCG-FREQ:FREQUENCY ; Q1HR
     Route: 062
     Dates: start: 20010814, end: 20020116
  9. DURAGESIC-100 [Suspect]
     Dosage: DAILY DOSE:50MCG-FREQ:FREQUENCY ; Q1HR
     Route: 062
     Dates: start: 20020130, end: 20020818
  10. DURAGESIC-100 [Suspect]
     Dosage: DAILY DOSE:75MCG-FREQ:FREQUENCY ; Q1HR
     Route: 062
     Dates: start: 20020819, end: 20020916
  11. DURAGESIC-100 [Suspect]
     Dosage: DAILY DOSE:100MCG-FREQ:FREQUENCY ; Q1HR
     Route: 062
     Dates: start: 20020917, end: 20030708
  12. NORCO [Suspect]
     Dosage: DAILY DOSE:10MG-TEXT:10MG HYDROCODONE/325MG ACETAMINOPHEN-FREQ:FREQUENCY ; Q4HR
     Route: 048
     Dates: start: 20030314, end: 20030708
  13. ULTRAM [Suspect]
     Dates: start: 20010611, end: 20020130
  14. VICOPROFEN [Suspect]
     Indication: BREAKTHROUGH PAIN
     Dates: start: 20010913, end: 20030201
  15. ZOSTRIX [Suspect]
  16. AMBIEN [Concomitant]
  17. ATIVAN [Concomitant]
  18. EFFEXOR [Concomitant]

REACTIONS (10)
  - COGNITIVE DISORDER [None]
  - DEPRESSION [None]
  - DRUG DEPENDENCE [None]
  - DRUG INEFFECTIVE [None]
  - HALLUCINATION, AUDITORY [None]
  - INSOMNIA [None]
  - OVERDOSE [None]
  - SOMNOLENCE [None]
  - TOOTH DISORDER [None]
  - TOOTH LOSS [None]
